FAERS Safety Report 7215626-X (Version None)
Quarter: 2011Q1

REPORT INFORMATION
  Report Type: 
  Country: None (occurrence: None)
  Receive Date: 20110107
  Receipt Date: 20101228
  Transmission Date: 20110831
  Serious: Yes (Other)
  Sender: FDA-Public Use
  Company Number: JP-JNJFOC-20101209144

PATIENT
  Age: 37 Year
  Sex: Male

DRUGS (14)
  1. ACETAMINOPHEN [Suspect]
  2. SERRAPEPTASE [Concomitant]
     Indication: OROPHARYNGEAL PAIN
  3. RISPERIDONE [Concomitant]
     Indication: DEPRESSION
     Dosage: 2-4 WEEKS
  4. BIPERIDEN HYDROCHLORIDE TAB [Concomitant]
     Indication: DEPRESSION
     Dosage: 2-4 WEEKS
  5. MIGRENIN [Concomitant]
     Indication: OROPHARYNGEAL PAIN
  6. DICLOFENAC [Concomitant]
     Indication: OROPHARYNGEAL PAIN
  7. FLUNITRAZEPAM [Concomitant]
     Indication: DEPRESSION
     Dosage: 2-4 WEEKS
  8. QUETIAPINE FUMARATE [Concomitant]
     Indication: DEPRESSION
     Dosage: 2-4 WEEKS
  9. LOXOPROFEN SODIUM [Concomitant]
     Indication: OROPHARYNGEAL PAIN
  10. DIMEMORFAN PHOSPHATE [Concomitant]
     Indication: OROPHARYNGEAL PAIN
  11. ACETAMINOPHEN [Suspect]
     Indication: OROPHARYNGEAL PAIN
  12. CIPROFLOXACIN [Concomitant]
     Indication: OROPHARYNGEAL PAIN
  13. CARBAMAZEPINE [Suspect]
     Indication: DEPRESSION
     Dosage: TREATED 2-4 WEEKS PRIOR TO SYMPTOMS
  14. LEVOMEPROMAZINE [Concomitant]
     Indication: DEPRESSION
     Dosage: 2-4 WEEKS

REACTIONS (1)
  - TOXIC EPIDERMAL NECROLYSIS [None]
